FAERS Safety Report 5357957-4 (Version None)
Quarter: 2007Q2

REPORT INFORMATION
  Report Type: 
  Country: None (occurrence: None)
  Receive Date: 20070530
  Receipt Date: 20070130
  Transmission Date: 20071010
  Serious: Yes (Death)
  Sender: FDA-Public Use
  Company Number: US200612003935

PATIENT
  Age: 41 Year
  Sex: Male
  Weight: 100.2 kg

DRUGS (6)
  1. ZYPREXA [Suspect]
     Indication: SCHIZOPHRENIA, PARANOID TYPE
     Dosage: SEE IMAGE
     Dates: start: 20020101
  2. ATENOLOL [Concomitant]
  3. LEXAPRO [Concomitant]
  4. ESCITALOPRAM OXALATE [Concomitant]
  5. AMBIEN [Concomitant]
  6. TRAZODIL (TRAZODONE HYDROCHLORIDE) [Concomitant]

REACTIONS (7)
  - ARTERIOSCLEROSIS [None]
  - BLOOD CHOLESTEROL INCREASED [None]
  - BLOOD GLUCOSE INCREASED [None]
  - BLOOD TRIGLYCERIDES INCREASED [None]
  - DIABETIC KETOACIDOSIS [None]
  - PRESCRIBED OVERDOSE [None]
  - PULMONARY VALVE DISEASE [None]
